FAERS Safety Report 7432020-7 (Version None)
Quarter: 2011Q2

REPORT INFORMATION
  Report Type: 
  Country: None (occurrence: None)
  Receive Date: 20110422
  Receipt Date: 20110418
  Transmission Date: 20111010
  Serious: Yes (Other)
  Sender: FDA-Public Use
  Company Number: US-ASTRAZENECA-2007UW04353

PATIENT
  Age: 62 Year
  Sex: Female
  Weight: 76.2 kg

DRUGS (9)
  1. WELLBUTTRIN [Concomitant]
     Dates: start: 20000101
  2. SEROQUEL [Suspect]
     Indication: DEPRESSION
     Route: 048
     Dates: start: 20040101, end: 20050101
  3. SEROQUEL [Suspect]
     Route: 048
     Dates: start: 20040913
  4. PAXIL [Concomitant]
  5. SEROQUEL [Suspect]
     Indication: BIPOLAR DISORDER
     Route: 048
     Dates: start: 20040101, end: 20050101
  6. SEROQUEL [Suspect]
     Route: 048
     Dates: start: 20040913
  7. LEXAPRO [Concomitant]
     Route: 048
     Dates: start: 20051005
  8. LEXAPRO [Concomitant]
     Dates: start: 20000101
  9. ABILIFY [Concomitant]
     Dates: start: 20090101

REACTIONS (10)
  - ARTHROPATHY [None]
  - HYPOGLYCAEMIA [None]
  - TYPE 2 DIABETES MELLITUS [None]
  - VISION BLURRED [None]
  - PANCREATITIS [None]
  - RENAL DISORDER [None]
  - BLOOD TRIGLYCERIDES INCREASED [None]
  - HYPERLIPIDAEMIA [None]
  - DIABETIC KETOACIDOSIS [None]
  - BLOOD CHOLESTEROL INCREASED [None]
